FAERS Safety Report 26103611 (Version 1)
Quarter: 2025Q4

REPORT INFORMATION
  Report Type: Spontaneous
  Country: US (occurrence: US)
  Receive Date: 20251129
  Receipt Date: 20251129
  Transmission Date: 20260119
  Serious: No
  Sender: ALEXION PHARMACEUTICALS
  Company Number: US-AstraZeneca-CH-01000089A

PATIENT
  Sex: Female

DRUGS (1)
  1. AIRSUPRA [Suspect]
     Active Substance: ALBUTEROL SULFATE\BUDESONIDE
     Dosage: 90 MICROGRAM
     Route: 065

REACTIONS (6)
  - Intentional dose omission [Unknown]
  - Illness [Unknown]
  - Asthma [Unknown]
  - Cough [Unknown]
  - No adverse event [Unknown]
  - Device use issue [Unknown]
